FAERS Safety Report 14095918 (Version 1)
Quarter: 2017Q4

REPORT INFORMATION
  Report Type: Report from Study
  Country: CH (occurrence: CH)
  Receive Date: 20171016
  Receipt Date: 20171016
  Transmission Date: 20180321
  Serious: Yes (Hospitalization)
  Sender: FDA-Public Use
  Company Number: CH-RECRO GAINESVILLE LLC-REPH-2017-000014

PATIENT
  Age: 35 Year
  Sex: Female
  Weight: 55 kg

DRUGS (1)
  1. VERAPAMIL HYDROCHLORIDE SUSTAINED RELEASE [Suspect]
     Active Substance: VERAPAMIL HYDROCHLORIDE
     Indication: MIGRAINE PROPHYLAXIS
     Dosage: UNK
     Route: 048

REACTIONS (12)
  - Generalised tonic-clonic seizure [Recovered/Resolved]
  - Cardiogenic shock [Recovered/Resolved]
  - Intentional overdose [Recovered/Resolved]
  - Ileus paralytic [Recovered/Resolved]
  - Suicidal ideation [Unknown]
  - Hypotension [Recovered/Resolved]
  - Acute kidney injury [Recovered/Resolved]
  - Toxicity to various agents [Recovered/Resolved]
  - Atrioventricular block complete [Recovered/Resolved]
  - Non-cardiogenic pulmonary oedema [Recovered/Resolved]
  - Bundle branch block right [None]
  - Bradycardia [Recovered/Resolved]

NARRATIVE: CASE EVENT DATE: 200508
